FAERS Safety Report 21039616 (Version 1)
Quarter: 2022Q3

REPORT INFORMATION
  Report Type: Spontaneous
  Country: FR (occurrence: FR)
  Receive Date: 20220704
  Receipt Date: 20220704
  Transmission Date: 20221027
  Serious: Yes (Hospitalization)
  Sender: FDA-Public Use
  Company Number: None

PATIENT
  Age: 62 Year
  Sex: Male
  Weight: 63 kg

DRUGS (3)
  1. SERTRALINE HYDROCHLORIDE [Suspect]
     Active Substance: SERTRALINE HYDROCHLORIDE
     Indication: Depression
     Dosage: 50 MG, ONCE A DAY
     Route: 048
  2. CLOXACILLIN [Suspect]
     Active Substance: CLOXACILLIN
     Indication: Staphylococcal infection
     Dosage: 3 G, ONCE A DAY (ALSO REPORTED AS 1 GX3/J)
     Route: 048
     Dates: end: 20201208
  3. TRAMADOL HYDROCHLORIDE [Suspect]
     Active Substance: TRAMADOL HYDROCHLORIDE
     Indication: Procedural pain
     Dosage: 200 MG, ONCE A DAY (ALSO REPORTED AS 100 MGX2/J)
     Route: 048
     Dates: end: 20201208

REACTIONS (1)
  - Epilepsy [Recovered/Resolved]

NARRATIVE: CASE EVENT DATE: 20211208
